FAERS Safety Report 4477571-2 (Version None)
Quarter: 2004Q3

REPORT INFORMATION
  Report Type: 
  Country: None (occurrence: None)
  Receive Date: 20040923
  Receipt Date: 20040802
  Transmission Date: 20050211
  Serious: No
  Sender: FDA-Public Use
  Company Number: USA040874307

PATIENT
  Age: 79 Year
  Sex: Female
  Weight: 63 kg

DRUGS (4)
  1. FORTEO [Suspect]
     Indication: OSTEOPOROSIS
     Dosage: 20 UG/1 DAY
     Dates: start: 20030701
  2. NEURONTIN [Concomitant]
  3. PRILOSEC [Concomitant]
  4. QUININE [Concomitant]

REACTIONS (3)
  - EYE DISORDER [None]
  - IMPAIRED DRIVING ABILITY [None]
  - MACULAR DEGENERATION [None]
